FAERS Safety Report 11394667 (Version 1)
Quarter: 2015Q3

REPORT INFORMATION
  Report Type: Spontaneous
  Country: DE (occurrence: DE)
  Receive Date: 20150819
  Receipt Date: 20150819
  Transmission Date: 20151125
  Serious: Yes (Hospitalization, Disabling)
  Sender: FDA-Public Use
  Company Number: DE-SA-2015SA121854

PATIENT
  Age: 81 Year
  Sex: Female

DRUGS (2)
  1. MULTAQ [Suspect]
     Active Substance: DRONEDARONE
     Indication: ATRIAL FIBRILLATION
     Route: 048
  2. FALITHROM [Concomitant]
     Active Substance: PHENPROCOUMON
     Indication: ATRIAL FIBRILLATION
     Dosage: 1-0-0
     Route: 048

REACTIONS (4)
  - Emphysema [Not Recovered/Not Resolved]
  - Lung hyperinflation [Not Recovered/Not Resolved]
  - Traumatic lung injury [Not Recovered/Not Resolved]
  - Obstruction [Not Recovered/Not Resolved]

NARRATIVE: CASE EVENT DATE: 20150708
